FAERS Safety Report 14160068 (Version 3)
Quarter: 2017Q4

REPORT INFORMATION
  Report Type: Spontaneous
  Country: AU (occurrence: AU)
  Receive Date: 20171103
  Receipt Date: 20171204
  Transmission Date: 20180321
  Serious: Yes (Life-Threatening, Hospitalization, Other)
  Sender: FDA-Public Use
  Company Number: AU-GILEAD-2017-0302633

PATIENT
  Age: 48 Year
  Sex: Male

DRUGS (11)
  1. HARVONI [Suspect]
     Active Substance: LEDIPASVIR\SOFOSBUVIR
     Indication: CHRONIC HEPATITIS C
     Dosage: 1 DF, QD
     Route: 065
     Dates: start: 20170701, end: 201707
  2. FUROSEMIDE. [Concomitant]
     Active Substance: FUROSEMIDE
  3. MORPHINE [Concomitant]
     Active Substance: MORPHINE
  4. PREDNISOLONE. [Concomitant]
     Active Substance: PREDNISOLONE
  5. GABAPENTIN. [Concomitant]
     Active Substance: GABAPENTIN
  6. THYROXINE [Concomitant]
     Active Substance: LEVOTHYROXINE
  7. TRIUMEQ [Concomitant]
     Active Substance: ABACAVIR SULFATE\DOLUTEGRAVIR SODIUM\LAMIVUDINE
     Dosage: UNK
     Dates: start: 201706
  8. SERTRALINE [Concomitant]
     Active Substance: SERTRALINE HYDROCHLORIDE
  9. SALBUTAMOL [Concomitant]
     Active Substance: ALBUTEROL
  10. DIAZEPAM. [Concomitant]
     Active Substance: DIAZEPAM
  11. TESTOSTERONE. [Concomitant]
     Active Substance: TESTOSTERONE

REACTIONS (2)
  - Angioedema [Recovered/Resolved]
  - Drug hypersensitivity [Unknown]

NARRATIVE: CASE EVENT DATE: 20170701
